FAERS Safety Report 5242883-1 (Version None)
Quarter: 2007Q1

REPORT INFORMATION
  Report Type: 
  Country: None (occurrence: None)
  Receive Date: 20070221
  Receipt Date: 20070209
  Transmission Date: 20070707
  Serious: Yes (Death, Hospitalization)
  Sender: FDA-Public Use
  Company Number: IN-ELI_LILLY_AND_COMPANY-IN200701003667

PATIENT
  Age: 72 Year
  Sex: Male
  Weight: 58 kg

DRUGS (11)
  1. LISPRO [Suspect]
     Indication: DIABETES MELLITUS NON-INSULIN-DEPENDENT
     Dosage: 20 IU, DAILY (1/D)
     Route: 058
     Dates: start: 20050407
  2. LISPRO [Suspect]
     Dosage: 15 IU, DAILY (1/D)
     Route: 058
     Dates: start: 20050407
  3. LISPRO [Suspect]
     Dosage: 10 IU, DAILY (1/D)
     Route: 058
     Dates: start: 20050407
  4. ECOSPRIN [Concomitant]
     Indication: MYOCARDIAL ISCHAEMIA
     Dosage: 150 MG, DAILY (1/D)
     Dates: start: 19950101
  5. LASILACTONE [Concomitant]
     Indication: CARDIAC FAILURE CONGESTIVE
     Dosage: 50 MG, UNK
     Dates: start: 20050326
  6. ISMO [Concomitant]
     Indication: MYOCARDIAL ISCHAEMIA
     Dosage: 20 MG, UNK
     Dates: start: 19950101
  7. TRIMETAZIDINE [Concomitant]
     Indication: MYOCARDIAL ISCHAEMIA
     Dosage: UNK, 2/D
     Dates: start: 20050326
  8. ATORVASTATIN [Concomitant]
     Indication: DYSLIPIDAEMIA
     Dosage: 10 MG, UNK
     Dates: start: 20000101
  9. RESTYL [Concomitant]
     Indication: PROPHYLAXIS
     Dosage: UNK, UNK
     Dates: start: 20060830
  10. HUMAN INSULIN (RDNA ORIGIN) NPH [Suspect]
     Indication: DIABETES MELLITUS NON-INSULIN-DEPENDENT
     Dosage: 2 IU, EACH EVENING
     Dates: start: 20061227
  11. METOPROLOL SUCCINATE [Concomitant]
     Indication: CARDIAC FAILURE CONGESTIVE
     Dosage: 2.5 MG, UNK

REACTIONS (2)
  - ACUTE LEFT VENTRICULAR FAILURE [None]
  - VENTRICULAR TACHYCARDIA [None]
